FAERS Safety Report 24023417 (Version 1)
Quarter: 2024Q2

REPORT INFORMATION
  Report Type: Report from Study
  Country: US (occurrence: US)
  Receive Date: 20240627
  Receipt Date: 20240627
  Transmission Date: 20240716
  Serious: No
  Sender: FDA-Public Use
  Company Number: US-ROCHE-3230251

PATIENT
  Age: 71 Year
  Sex: Female
  Weight: 77.56 kg

DRUGS (6)
  1. ALECENSA [Suspect]
     Active Substance: ALECTINIB HYDROCHLORIDE
     Indication: Lung neoplasm malignant
     Dosage: TAKE 2 CAPSULE(S) BY MOUTH TWICE A DAY WITH MEALS
     Route: 048
  2. ALECENSA [Suspect]
     Active Substance: ALECTINIB HYDROCHLORIDE
     Indication: Acute respiratory failure
     Dosage: 6 CAPSULES OF 150 MG PER DAY
     Route: 048
     Dates: start: 2019, end: 2019
  3. ALECENSA [Suspect]
     Active Substance: ALECTINIB HYDROCHLORIDE
     Indication: Metastases to liver
     Dosage: 4 CAPSULES OF 150MG- 2 IN THE MORNING AND 2 IN THE AFTERNOON
     Route: 048
     Dates: start: 2019
  4. ALECENSA [Suspect]
     Active Substance: ALECTINIB HYDROCHLORIDE
     Indication: Cholangiocarcinoma
     Route: 048
  5. ALECENSA [Suspect]
     Active Substance: ALECTINIB HYDROCHLORIDE
     Route: 048
  6. AMBROXOL [Concomitant]
     Active Substance: AMBROXOL
     Indication: Cough

REACTIONS (9)
  - Fatigue [Not Recovered/Not Resolved]
  - Dizziness [Unknown]
  - Hunger [Unknown]
  - Memory impairment [Unknown]
  - Pain [Unknown]
  - Urticaria [Recovered/Resolved]
  - Pyrexia [Recovered/Resolved]
  - Vomiting [Recovered/Resolved]
  - Pollakiuria [Not Recovered/Not Resolved]

NARRATIVE: CASE EVENT DATE: 20190101
